FAERS Safety Report 5962446-X (Version None)
Quarter: 2008Q4

REPORT INFORMATION
  Report Type: 
  Country: None (occurrence: None)
  Receive Date: 20081121
  Receipt Date: 20081118
  Transmission Date: 20090506
  Serious: Yes (Hospitalization, Other)
  Sender: FDA-Public Use
  Company Number: US-PFIZER INC-2008048780

PATIENT
  Sex: Female
  Weight: 81 kg

DRUGS (7)
  1. CHANTIX [Suspect]
     Indication: SMOKING CESSATION THERAPY
     Dates: start: 20080416, end: 20080527
  2. CHANTIX [Suspect]
     Dates: start: 20080422, end: 20080527
  3. ATIVAN [Concomitant]
     Route: 048
  4. PRILOSEC [Concomitant]
  5. ACETYLSALICYLIC ACID SRT [Concomitant]
  6. WELLBUTRIN [Concomitant]
     Route: 048
     Dates: end: 20080801
  7. ABILIFY [Concomitant]
     Route: 048

REACTIONS (1)
  - DEPRESSION [None]
